FAERS Safety Report 22099766 (Version 1)
Quarter: 2023Q1

REPORT INFORMATION
  Report Type: Report from Study
  Country: IT (occurrence: IT)
  Receive Date: 20230315
  Receipt Date: 20230315
  Transmission Date: 20230417
  Serious: Yes (Other)
  Sender: FDA-Public Use
  Company Number: None

PATIENT
  Age: 3 Year
  Sex: Female
  Weight: 20 kg

DRUGS (2)
  1. CLARITHROMYCIN [Suspect]
     Active Substance: CLARITHROMYCIN
     Indication: Bronchitis
     Dosage: 1 DOSAGE FORM, QD, 350UNIT OF MEASUREMENT:MILLIG
     Route: 048
     Dates: start: 20220921, end: 20220923
  2. TEGRETOL [Suspect]
     Active Substance: CARBAMAZEPINE
     Indication: Epilepsy
     Dosage: 350 MG, 1 DF, QD, 350UNIT OF MEASUREMENT: MILLIG
     Route: 048
     Dates: start: 20220101

REACTIONS (4)
  - Medication error [Unknown]
  - Drug level increased [Unknown]
  - Crying [Recovering/Resolving]
  - Asthenia [Recovering/Resolving]

NARRATIVE: CASE EVENT DATE: 20220923
